FAERS Safety Report 15769891 (Version 1)
Quarter: 2018Q4

REPORT INFORMATION
  Report Type: Spontaneous
  Country: US (occurrence: US)
  Receive Date: 20181227
  Receipt Date: 20181227
  Transmission Date: 20190205
  Serious: Yes (Other)
  Sender: FDA-Public Use
  Company Number: None

PATIENT
  Age: 52 Year
  Sex: Male
  Weight: 99 kg

DRUGS (13)
  1. BABY ASPIRIN [Concomitant]
     Active Substance: ASPIRIN
  2. STOOL SOFTENER (DOCUSATE) [Concomitant]
     Active Substance: DOCUSATE
  3. PAXIL [Concomitant]
     Active Substance: PAROXETINE HYDROCHLORIDE
  4. PRAVACHOL [Concomitant]
     Active Substance: PRAVASTATIN SODIUM
  5. DILAUDID [Concomitant]
     Active Substance: HYDROMORPHONE HYDROCHLORIDE
  6. FENTANYL TRANSDERMAL SYSTEM 100 MCG/HR [Suspect]
     Active Substance: FENTANYL
     Indication: PAIN MANAGEMENT
     Dosage: ?          OTHER STRENGTH:MCG/HR;QUANTITY:5 PATCH(ES);OTHER FREQUENCY:ONCE EVERY 48 HRS;?
     Route: 062
  7. WELLBUTRIN [Concomitant]
     Active Substance: BUPROPION HYDROCHLORIDE
  8. PARAFON FORTE [Concomitant]
     Active Substance: CHLORZOXAZONE
  9. NARCAN [Concomitant]
     Active Substance: NALOXONE HYDROCHLORIDE
  10. CLARITIN-D NOS [Concomitant]
     Active Substance: LORATADINE\PSEUDOEPHEDRINE SULFATE
  11. FENTANYL TRANSDERMAL SYSTEM 75 MCG/HR [Suspect]
     Active Substance: FENTANYL
     Indication: PAIN MANAGEMENT
     Dosage: OTHER STRENGTH:MCG/HR;QUANTITY:5 PATCH(ES);OTHER FREQUENCY:ONCE EVERY 48 HRS;?
     Route: 062
  12. ATIVAN [Concomitant]
     Active Substance: LORAZEPAM
  13. PRILOSEC [Concomitant]
     Active Substance: OMEPRAZOLE MAGNESIUM

REACTIONS (9)
  - Middle insomnia [None]
  - Withdrawal syndrome [None]
  - Nausea [None]
  - Joint stiffness [None]
  - Product quality issue [None]
  - Drug tolerance [None]
  - Incorrect product administration duration [None]
  - Hyperhidrosis [None]
  - Discomfort [None]

NARRATIVE: CASE EVENT DATE: 20181219
